FAERS Safety Report 7692687-5 (Version None)
Quarter: 2011Q3

REPORT INFORMATION
  Report Type: 
  Country: None (occurrence: None)
  Receive Date: 20110819
  Receipt Date: 20110817
  Transmission Date: 20111222
  Serious: No
  Sender: FDA-Public Use
  Company Number: US-PFIZER INC-2011189866

PATIENT
  Sex: Female
  Weight: 86 kg

DRUGS (10)
  1. SIMVASTATIN [Concomitant]
     Dosage: UNK
  2. ACETYLSALICYLIC ACID [Concomitant]
     Dosage: 81 MG, UNK
  3. ALPRAZOLAM [Concomitant]
     Dosage: UNK
  4. CHANTIX [Suspect]
     Indication: SMOKING CESSATION THERAPY
     Dosage: UNK
     Route: 048
  5. CENTRUM SILVER [Concomitant]
     Dosage: UNK
  6. PAXIL [Concomitant]
     Dosage: UNK
  7. CHANTIX [Suspect]
     Dosage: UNK
     Dates: start: 20110601
  8. CHANTIX [Suspect]
     Dosage: 0.5 MG, 1X/DAY
     Dates: start: 20110610, end: 20110601
  9. ATENOLOL [Concomitant]
     Indication: HYPERTENSION
     Dosage: UNK
  10. VITAMIN D [Concomitant]
     Dosage: 1000 UNITS, UNK

REACTIONS (2)
  - ABNORMAL DREAMS [None]
  - NAUSEA [None]
